FAERS Safety Report 16755076 (Version 1)
Quarter: 2019Q3

REPORT INFORMATION
  Report Type: Report from Study
  Country: US (occurrence: US)
  Receive Date: 20190829
  Receipt Date: 20190829
  Transmission Date: 20191005
  Serious: Yes (Hospitalization)
  Sender: FDA-Public Use
  Company Number: US-ROCHE-2387157

PATIENT
  Age: 71 Year
  Sex: Male
  Weight: 100 kg

DRUGS (8)
  1. MVA-BN-CV301 [Suspect]
     Active Substance: INVESTIGATIONAL PRODUCT
     Indication: BLADDER CANCER
     Dosage: GIVEN SC EVERY 21 DAYS FOR 4 DOSES (ON DAYS 43, 64, 85, AND 106), FOLLOWED BY BOOSTS EVERY 6 WEEKS U
     Route: 058
     Dates: start: 20190516, end: 20190516
  2. MVA-BN-CV301 [Suspect]
     Active Substance: INVESTIGATIONAL PRODUCT
     Route: 058
     Dates: start: 20190606, end: 20190606
  3. ACETAMINOPHEN. [Concomitant]
     Active Substance: ACETAMINOPHEN
  4. ASPIRIN [ACETYLSALICYLIC ACID] [Concomitant]
     Active Substance: ASPIRIN
     Route: 065
     Dates: start: 2018
  5. ATEZOLIZUMAB. [Suspect]
     Active Substance: ATEZOLIZUMAB
     Route: 041
     Dates: start: 20190606, end: 20190606
  6. ATORVASTATIN [Concomitant]
     Active Substance: ATORVASTATIN
     Route: 065
     Dates: start: 201807
  7. ATEZOLIZUMAB. [Suspect]
     Active Substance: ATEZOLIZUMAB
     Indication: BLADDER CANCER
     Route: 041
     Dates: start: 20190516, end: 20190516
  8. METOPROLOL TARTRATE. [Concomitant]
     Active Substance: METOPROLOL TARTRATE
     Route: 065
     Dates: start: 2018

REACTIONS (2)
  - Intestinal obstruction [Unknown]
  - Small intestinal obstruction [Unknown]

NARRATIVE: CASE EVENT DATE: 20190614
